FAERS Safety Report 7319106-2 (Version None)
Quarter: 2011Q1

REPORT INFORMATION
  Report Type: 
  Country: None (occurrence: None)
  Receive Date: 20110228
  Receipt Date: 20110214
  Transmission Date: 20110831
  Serious: Yes (Other)
  Sender: FDA-Public Use
  Company Number: PHHY2011BE12502

PATIENT
  Age: 47 Year
  Sex: Male

DRUGS (12)
  1. RASILEZ [Suspect]
     Indication: HYPERTENSION
     Dosage: 150 MG, UNK
     Dates: start: 20081201, end: 20090327
  2. INSULIN [Concomitant]
     Indication: DIABETES MELLITUS
  3. RASILEZ [Suspect]
     Dosage: 300 MG, UNK
     Dates: start: 20090328, end: 20100123
  4. RASILEZ HCT [Suspect]
     Indication: HYPERTENSION
     Dosage: 1 DF, (300/12.5 MG)
     Route: 048
     Dates: start: 20100123, end: 20100416
  5. RASILEZ HCT [Suspect]
     Dosage: 1 DF,(300/12.5 MG)
     Route: 048
     Dates: start: 20110122
  6. AMLOR [Concomitant]
     Dosage: 5 MG, UNK
  7. LEVOTHYROXINE SODIUM [Concomitant]
     Indication: GOITRE
  8. RASILEZ HCT [Suspect]
     Dosage: 1 DF,(300/25 MG)
     Route: 048
     Dates: start: 20100417, end: 20110121
  9. D-CURE [Concomitant]
  10. ASAFLOW [Concomitant]
     Indication: HYPERTENSION
     Dosage: 80 MG, UNK
  11. CALCIUM [Concomitant]
  12. ZOCOR [Concomitant]
     Indication: HYPERLIPIDAEMIA
     Dosage: 20 MG, UNK

REACTIONS (1)
  - HYPONATRAEMIA [None]
